FAERS Safety Report 6988606-7 (Version None)
Quarter: 2010Q3

REPORT INFORMATION
  Report Type: 
  Country: None (occurrence: None)
  Receive Date: 20100916
  Receipt Date: 20100902
  Transmission Date: 20110219
  Serious: Yes (Death)
  Sender: FDA-Public Use
  Company Number: US-PURDUE-USA-2010-0046184

PATIENT
  Sex: Male

DRUGS (2)
  1. OXYCONTIN [Suspect]
     Indication: PAIN
     Dosage: 120 MG, TWICE
  2. OXYCONTIN [Suspect]
     Dosage: 10 MG, UNK
     Dates: start: 20040101

REACTIONS (1)
  - MALIGNANT NEOPLASM PROGRESSION [None]
